FAERS Safety Report 18988653 (Version 2)
Quarter: 2021Q2

REPORT INFORMATION
  Report Type: Spontaneous
  Country: US (occurrence: US)
  Receive Date: 20210309
  Receipt Date: 20210507
  Transmission Date: 20210717
  Serious: Yes (Other)
  Sender: FDA-Public Use
  Company Number: US-ASTRAZENECA-2021A102460

PATIENT
  Age: 56 Year
  Sex: Female
  Weight: 97.5 kg

DRUGS (1)
  1. BYETTA [Suspect]
     Active Substance: EXENATIDE
     Indication: TYPE 2 DIABETES MELLITUS
     Route: 058

REACTIONS (7)
  - Glycosylated haemoglobin increased [Recovered/Resolved]
  - Device delivery system issue [Unknown]
  - Visual impairment [Not Recovered/Not Resolved]
  - Intentional device misuse [Not Recovered/Not Resolved]
  - Blood glucose increased [Recovered/Resolved]
  - Wrong technique in device usage process [Unknown]
  - Product dose omission issue [Unknown]

NARRATIVE: CASE EVENT DATE: 2020
